FAERS Safety Report 14315261 (Version 1)
Quarter: 2017Q4

REPORT INFORMATION
  Report Type: Spontaneous
  Country: BE (occurrence: BE)
  Receive Date: 20171221
  Receipt Date: 20171221
  Transmission Date: 20180321
  Serious: Yes (Other)
  Sender: FDA-Public Use
  Company Number: BE-BAUSCH-BL-2017-034143

PATIENT
  Age: 56 Year

DRUGS (8)
  1. DESOMEDINE 1 PERCENT [Concomitant]
     Indication: CORNEAL ABSCESS
     Dosage: EVERY 5 DAYS
     Route: 061
  2. DESOMEDINE 1 PERCENT [Concomitant]
     Dosage: EVERY 8 DAYS
     Route: 061
  3. MOXIFLOXACIN 0.5 PERCENT [Suspect]
     Active Substance: MOXIFLOXACIN
     Indication: CORNEAL ABSCESS
     Dosage: EVERY 1 HOUR
     Route: 061
  4. MOXIFLOXACIN 0.5 PERCENT [Suspect]
     Active Substance: MOXIFLOXACIN
     Dosage: EVERY 3 DAYS
     Route: 061
  5. TOBRAMYCIN 0.3 PERCENT [Suspect]
     Active Substance: TOBRAMYCIN
     Indication: CORNEAL ABSCESS
     Dosage: EVERY 1 HOUR
     Route: 061
  6. MOXIFLOXACIN 0.5 PERCENT [Suspect]
     Active Substance: MOXIFLOXACIN
     Dosage: EVERY 5 DAYS
     Route: 061
  7. TOBRAMYCIN 0.3 PERCENT [Suspect]
     Active Substance: TOBRAMYCIN
     Dosage: EVERY 5 DAYS
     Route: 061
  8. TOBRAMYCIN 0.3 PERCENT [Suspect]
     Active Substance: TOBRAMYCIN
     Dosage: EVERY 1 HOUR
     Route: 061

REACTIONS (4)
  - Iris adhesions [Unknown]
  - Impaired healing [Recovered/Resolved]
  - Ulcerative keratitis [Recovering/Resolving]
  - Corneal perforation [Recovering/Resolving]
